FAERS Safety Report 10495050 (Version 2)
Quarter: 2014Q4

REPORT INFORMATION
  Report Type: Spontaneous
  Country: US (occurrence: US)
  Receive Date: 20141003
  Receipt Date: 20141003
  Transmission Date: 20150528
  Serious: No
  Sender: FDA-Public Use
  Company Number: US-MYLANLABS-2014S1016905

PATIENT
  Age: 43 Year
  Sex: Female
  Weight: 93.7 kg

DRUGS (2)
  1. CLINDAMYCIN - BENZOYL PEROXIDE [Suspect]
     Active Substance: BENZOYL PEROXIDE\CLINDAMYCIN PHOSPHATE
     Indication: ACNE
     Dosage: 1 %/5%, APPLY TO AFFECTED AREA TWICE DAILY
     Route: 061
     Dates: start: 20140116
  2. CLINDAMYCIN - BENZOYL PEROXIDE [Suspect]
     Active Substance: BENZOYL PEROXIDE\CLINDAMYCIN PHOSPHATE
     Dosage: 1 %/5%, APPLY TO AFFECTED AREA TWICE DAILY
     Route: 061

REACTIONS (2)
  - Drug ineffective [Not Recovered/Not Resolved]
  - Acne [Not Recovered/Not Resolved]

NARRATIVE: CASE EVENT DATE: 20140116
